FAERS Safety Report 7493304-X (Version None)
Quarter: 2011Q2

REPORT INFORMATION
  Report Type: 
  Country: None (occurrence: None)
  Receive Date: 20110520
  Receipt Date: 20110512
  Transmission Date: 20111010
  Serious: Yes (Other)
  Sender: FDA-Public Use
  Company Number: FR-TEVA-266750USA

PATIENT
  Sex: Female

DRUGS (1)
  1. PIMOZIDE TABLETS [Suspect]
     Indication: SCHIZOPHRENIA
     Dates: start: 19800101

REACTIONS (2)
  - HEPATIC ENZYME INCREASED [None]
  - HEPATITIS [None]
